FAERS Safety Report 4863473-6 (Version None)
Quarter: 2005Q4

REPORT INFORMATION
  Report Type: 
  Country: None (occurrence: None)
  Receive Date: 20051222
  Receipt Date: 20050218
  Transmission Date: 20060501
  Serious: No
  Sender: FDA-Public Use
  Company Number: US-GLAXOSMITHKLINE-A0546337A

PATIENT
  Age: 77 Year
  Sex: Male

DRUGS (2)
  1. FLONASE [Suspect]
     Indication: SINUS CONGESTION
     Dosage: 1SPR TWICE PER DAY
     Route: 045
     Dates: start: 20050210, end: 20050214
  2. NO CONCURRENT MEDICATION [Concomitant]

REACTIONS (4)
  - DIZZINESS [None]
  - HEADACHE [None]
  - POLLAKIURIA [None]
  - THIRST [None]
